FAERS Safety Report 6111932-0 (Version None)
Quarter: 2009Q1

REPORT INFORMATION
  Report Type: 
  Country: None (occurrence: None)
  Receive Date: 20090311
  Receipt Date: 20090309
  Transmission Date: 20090719
  Serious: Yes (Other)
  Sender: FDA-Public Use
  Company Number: US-ROXANE LABORATORIES, INC.-2009-RO-00220RO

PATIENT
  Age: 49 Year
  Sex: Male

DRUGS (8)
  1. LITHIUM CARBONATE [Suspect]
     Dosage: 900MG
  2. RISPERIDONE [Suspect]
     Dosage: 2MG
  3. RISPERIDONE [Suspect]
     Dosage: 8MG
  4. BENZOTROPINE [Suspect]
     Dosage: 1MG
  5. TRAZODONE HCL [Suspect]
  6. QUETAPINE [Suspect]
  7. PHENYLEPHRINE [Concomitant]
     Indication: PRIAPISM
  8. PSEUDOEPHEDRINE HCL [Concomitant]
     Indication: PRIAPISM
     Dosage: 60MG

REACTIONS (1)
  - PRIAPISM [None]
